FAERS Safety Report 5330703-6 (Version None)
Quarter: 2007Q2

REPORT INFORMATION
  Report Type: 
  Country: None (occurrence: None)
  Receive Date: 20070522
  Receipt Date: 20070509
  Transmission Date: 20071010
  Serious: Yes (Hospitalization, Other)
  Sender: FDA-Public Use
  Company Number: PHBS2007BR07616

PATIENT
  Age: 47 Year
  Sex: Female

DRUGS (7)
  1. TRILEPTAL [Suspect]
     Indication: CONVULSION
     Dosage: 300 MG, Q8H
     Route: 048
  2. TRILEPTAL [Suspect]
     Dosage: 300 MG, TID
     Route: 048
  3. ACETYLSALICYLIC ACID SRT [Concomitant]
  4. LAMOTRIGINE [Concomitant]
  5. SEROQUEL [Concomitant]
  6. LEXAPRO [Concomitant]
  7. SERTRALINE [Concomitant]

REACTIONS (7)
  - APHASIA [None]
  - BRAIN NEOPLASM [None]
  - BRAIN OPERATION [None]
  - CEREBRAL THROMBOSIS [None]
  - CONCOMITANT DISEASE PROGRESSION [None]
  - CONVULSION [None]
  - THROMBOCYTHAEMIA [None]
